FAERS Safety Report 5505078-X (Version None)
Quarter: 2007Q4

REPORT INFORMATION
  Report Type: 
  Country: None (occurrence: None)
  Receive Date: 20071031
  Receipt Date: 20071031
  Transmission Date: 20080405
  Serious: Yes (Other)
  Sender: FDA-Public Use
  Company Number: None

PATIENT
  Age: 28 Year
  Sex: Female
  Weight: 81.6475 kg

DRUGS (1)
  1. ADDERALL 20 [Suspect]
     Indication: ATTENTION DEFICIT/HYPERACTIVITY DISORDER
     Dosage: 20MG  ONCE A DAY  PO
     Route: 048
     Dates: start: 20000701, end: 20070101

REACTIONS (2)
  - HYPERTENSION [None]
  - TREATMENT NONCOMPLIANCE [None]
